FAERS Safety Report 9643369 (Version 6)
Quarter: 2014Q2

REPORT INFORMATION
  Report Type: Report from Study
  Country: US (occurrence: US)
  Receive Date: 20131024
  Receipt Date: 20140530
  Transmission Date: 20141212
  Serious: Yes (Hospitalization)
  Sender: FDA-Public Use
  Company Number: US-VERTEX PHARMACEUTICALS INC-2013-010482

PATIENT
  Age: 35 Year
  Sex: Female
  Weight: 62 kg

DRUGS (26)
  1. VX-809 FDC [Suspect]
     Indication: CYSTIC FIBROSIS
     Dosage: 600 MG, QD
     Route: 048
     Dates: start: 20130924, end: 20131011
  2. VX-770 FDC [Suspect]
     Indication: CYSTIC FIBROSIS
     Dosage: 250 MG, QD
     Route: 048
     Dates: start: 20130924, end: 20131011
  3. VX-770 [Suspect]
     Indication: CYSTIC FIBROSIS
     Dosage: 250 MG, QD
     Route: 048
     Dates: start: 20130924, end: 20131011
  4. ZITHROMAX [Suspect]
     Indication: LUNG DISORDER
     Dosage: 500 MG, QOD (MWF)
     Route: 048
     Dates: start: 20011001, end: 20131011
  5. MEROPENEM [Suspect]
     Indication: INFECTIVE PULMONARY EXACERBATION OF CYSTIC FIBROSIS
     Dosage: 2 G, TID
     Dates: start: 20130730, end: 20130814
  6. APRI [Suspect]
     Indication: ORAL CONTRACEPTION
     Dosage: 1 DF, QD
     Route: 048
     Dates: start: 20110722
  7. MOTRIN [Concomitant]
     Indication: LIGAMENT SPRAIN
     Dosage: HIGH DOSE
     Dates: end: 2008
  8. MOTRIN [Concomitant]
     Dosage: UNK, PRN
     Dates: start: 20130920
  9. UROCIT-K [Concomitant]
     Indication: NEPHROLITHIASIS
     Dosage: 20 MEQ, BID
     Route: 048
     Dates: start: 20051017
  10. ZENPEP [Concomitant]
     Indication: PANCREATIC INSUFFICIENCY
     Dosage: 5 DF, AC
     Route: 048
     Dates: start: 20100628
  11. ERGOCALCIFEROL [Concomitant]
     Indication: PANCREATIC INSUFFICIENCY
     Dosage: 50000 IU, QW (SUNDAY)
     Route: 048
     Dates: start: 20110103
  12. HUMULIN BASAL NPH [Concomitant]
     Indication: CYSTIC FIBROSIS RELATED DIABETES
     Dosage: 0.3 ML, QD (BEFORE BREAKFAST)
     Route: 058
     Dates: start: 199612
  13. EXCEDRIN [Concomitant]
     Indication: MIGRAINE
     Dosage: UNK, PRN
  14. MIDAZOLAM [Concomitant]
     Indication: APPENDICITIS PERFORATED
     Dosage: 3 MG, UNK
     Route: 042
     Dates: start: 20130915
  15. FENTANYL [Concomitant]
     Indication: APPENDICITIS PERFORATED
     Dosage: 150 MG, UNK
     Route: 042
     Dates: start: 20130615
  16. LIDOCAINE W/SODIUM BICARBONATE [Concomitant]
     Indication: APPENDICITIS PERFORATED
     Dosage: 10 ML, UNK
     Route: 058
     Dates: start: 20130615
  17. TOBRAMYCIN SULFATE [Concomitant]
     Indication: INFECTIVE PULMONARY EXACERBATION OF CYSTIC FIBROSIS
     Dosage: 220 MG, TID
     Route: 042
     Dates: start: 20130730, end: 20130814
  18. CEFTAZIDIME [Concomitant]
     Indication: INFECTIVE PULMONARY EXACERBATION OF CYSTIC FIBROSIS
     Dosage: 2 G, X2 DOSES
     Route: 042
     Dates: start: 20130730
  19. ALBUTEROL HFA [Concomitant]
     Indication: WHEEZING
     Dosage: 2 DF, QID, PRN
     Route: 055
  20. ALBUTEROL [Concomitant]
     Indication: WHEEZING
     Dosage: 2.49 MG, QID, PRN
     Route: 055
  21. PULMOZYME [Concomitant]
     Dosage: 2.5 MG, QD
     Route: 055
  22. INSULIN ASPART [Concomitant]
     Route: 058
  23. LANSOPRAZOLE [Concomitant]
     Dosage: 30 MG, BID
     Route: 048
  24. MULTIVITAMINS [Concomitant]
     Dosage: 1 DF, QD
     Route: 048
  25. CIPROFLOXACIN [Concomitant]
     Indication: PROPHYLAXIS
     Dosage: UNK, SINGLE
     Route: 042
     Dates: start: 20131011, end: 20131011
  26. METRONIDAZOLE [Concomitant]
     Indication: PROPHYLAXIS
     Dosage: 500 MG, UNK
     Route: 042
     Dates: start: 20131011

REACTIONS (1)
  - Hepatitis cholestatic [Recovered/Resolved]
